FAERS Safety Report 20635878 (Version 1)
Quarter: 2022Q1

REPORT INFORMATION
  Report Type: Spontaneous
  Country: US (occurrence: None)
  Receive Date: 20220324
  Receipt Date: 20220324
  Transmission Date: 20220423
  Serious: Yes (Hospitalization)
  Sender: FDA-Public Use
  Company Number: None

PATIENT
  Age: 64 Year
  Sex: Female

DRUGS (1)
  1. ZEJULA [Suspect]
     Active Substance: NIRAPARIB
     Indication: Ovarian cancer
     Dosage: 200MG ONCE DAILY ORAL?
     Route: 048
     Dates: start: 20220120, end: 20220223

REACTIONS (3)
  - Hypertension [None]
  - Thrombocytopenia [None]
  - Therapy cessation [None]

NARRATIVE: CASE EVENT DATE: 20220223
